FAERS Safety Report 5202249-7 (Version None)
Quarter: 2007Q1

REPORT INFORMATION
  Report Type: 
  Country: None (occurrence: None)
  Receive Date: 20070109
  Receipt Date: 20070104
  Transmission Date: 20070707
  Serious: Yes (Other)
  Sender: FDA-Public Use
  Company Number: US-GLAXOSMITHKLINE-A0627656A

PATIENT
  Age: 72 Year
  Sex: Female

DRUGS (19)
  1. COREG [Suspect]
     Indication: HYPERTENSION
     Dosage: 12.5MG TWICE PER DAY
     Route: 048
     Dates: start: 20060501, end: 20061201
  2. ADVAIR DISKUS 100/50 [Suspect]
     Indication: ASTHMA
     Dosage: 1PUFF TWICE PER DAY
     Route: 055
     Dates: start: 19960101
  3. FLOVENT [Suspect]
     Indication: ASTHMA
     Route: 055
  4. SEREVENT [Suspect]
     Indication: ASTHMA
     Route: 055
  5. SYNTHROID [Concomitant]
  6. AMARYL [Concomitant]
  7. METFORMIN HCL [Concomitant]
  8. CALCIUM [Concomitant]
  9. FOLTX [Concomitant]
  10. VITAMIN D [Concomitant]
  11. SINGULAIR [Concomitant]
  12. BENICAR HCT [Concomitant]
  13. LIPITOR [Concomitant]
  14. PRILOSEC [Concomitant]
  15. TRICOR [Concomitant]
  16. PERI-COLACE [Concomitant]
  17. REFRESH TEARS [Concomitant]
  18. ESTRACE [Concomitant]
  19. TYLENOL [Concomitant]

REACTIONS (12)
  - ASTHENIA [None]
  - ASTHMA [None]
  - COUGH [None]
  - DRUG INEFFECTIVE [None]
  - FATIGUE [None]
  - HEADACHE [None]
  - HEART RATE INCREASED [None]
  - INSOMNIA [None]
  - NASOPHARYNGITIS [None]
  - OEDEMA PERIPHERAL [None]
  - TENSION [None]
  - WHEEZING [None]
